FAERS Safety Report 6238657-5 (Version None)
Quarter: 2009Q2

REPORT INFORMATION
  Report Type: 
  Country: None (occurrence: None)
  Receive Date: 20090617
  Receipt Date: 20080407
  Transmission Date: 20091009
  Serious: No
  Sender: FDA-Public Use
  Company Number: 273567

PATIENT
  Age: 54 Year
  Sex: Male

DRUGS (2)
  1. LEVEMIR [Suspect]
     Indication: DIABETES MELLITUS
     Dosage: 34 IU, SUBCUTANEOUS
     Route: 058
     Dates: start: 20081101
  2. LEVEMIR [Suspect]
     Dosage: SUBCUTANEOUS
     Route: 058

REACTIONS (3)
  - INJECTION SITE PRURITUS [None]
  - INSOMNIA [None]
  - RASH [None]
